FAERS Safety Report 18799417 (Version 1)
Quarter: 2021Q1

REPORT INFORMATION
  Report Type: Spontaneous
  Country: US (occurrence: US)
  Receive Date: 20210127
  Receipt Date: 20210127
  Transmission Date: 20210419
  Serious: Yes (Death)
  Sender: FDA-Public Use
  Company Number: None

PATIENT
  Age: 89 Year
  Sex: Female

DRUGS (22)
  1. HYOSCYAMINE. [Concomitant]
     Active Substance: HYOSCYAMINE
  2. LORAZEPAM. [Concomitant]
     Active Substance: LORAZEPAM
  3. VANCOMYCIN [Concomitant]
     Active Substance: VANCOMYCIN
  4. ACETAMIN [Concomitant]
     Active Substance: ACETAMINOPHEN
  5. DICYCLOMINE [Concomitant]
     Active Substance: DICYCLOMINE HYDROCHLORIDE
  6. MORPHINE SUL [Concomitant]
     Active Substance: MORPHINE SULFATE
  7. FUROSEMIDE. [Concomitant]
     Active Substance: FUROSEMIDE
  8. OMEPRAZOLE. [Concomitant]
     Active Substance: OMEPRAZOLE
  9. CYPROHEPTAD [Concomitant]
  10. MIRTAZAPINE. [Concomitant]
     Active Substance: MIRTAZAPINE
  11. SMZ/TMP DS [Concomitant]
     Active Substance: SULFAMETHOXAZOLE\TRIMETHOPRIM
  12. STIMULANT [Concomitant]
     Active Substance: UNSPECIFIED INGREDIENT
  13. TRAMADOL HCL [Concomitant]
     Active Substance: TRAMADOL HYDROCHLORIDE
  14. METRONIDAZOL [Concomitant]
     Active Substance: METRONIDAZOLE
  15. WAL TUSSIN DM [Concomitant]
     Active Substance: DEXTROMETHORPHAN HYDROBROMIDE\GUAIFENESIN
  16. CARVEDILOL. [Concomitant]
     Active Substance: CARVEDILOL
  17. DOXYCYCL HYC [Concomitant]
  18. ASPIRIN 81 [Concomitant]
     Active Substance: ASPIRIN
  19. DONEPEZIL. [Concomitant]
     Active Substance: DONEPEZIL
  20. QUETIAPINE. [Concomitant]
     Active Substance: QUETIAPINE
  21. ESBRIET [Suspect]
     Active Substance: PIRFENIDONE
     Indication: IDIOPATHIC PULMONARY FIBROSIS
     Route: 048
     Dates: start: 20171216, end: 20210125
  22. LISINOPRIL. [Concomitant]
     Active Substance: LISINOPRIL

REACTIONS (1)
  - Death [None]

NARRATIVE: CASE EVENT DATE: 20210125
